FAERS Safety Report 7438627-5 (Version None)
Quarter: 2011Q2

REPORT INFORMATION
  Report Type: 
  Country: None (occurrence: None)
  Receive Date: 20110426
  Receipt Date: 20110413
  Transmission Date: 20111010
  Serious: Yes (Hospitalization)
  Sender: FDA-Public Use
  Company Number: US-BAYER-2011-033659

PATIENT
  Age: 43 Year
  Sex: Female

DRUGS (2)
  1. BETASERON [Suspect]
     Route: 058
  2. EXTAVIA [Suspect]
     Indication: MULTIPLE SCLEROSIS
     Route: 058

REACTIONS (1)
  - BLADDER DISORDER [None]
